FAERS Safety Report 21498924 (Version 4)
Quarter: 2023Q4

REPORT INFORMATION
  Report Type: Spontaneous
  Country: JP (occurrence: JP)
  Receive Date: 20221024
  Receipt Date: 20231124
  Transmission Date: 20240110
  Serious: Yes (Hospitalization)
  Sender: FDA-Public Use
  Company Number: JP-BRISTOL-MYERS SQUIBB COMPANY-2022-113722

PATIENT
  Age: 54 Year
  Sex: Female

DRUGS (2)
  1. YERVOY [Suspect]
     Active Substance: IPILIMUMAB
     Indication: Renal cell carcinoma
     Dosage: ONE TIME DOSE EVERY THREE WEEKS
     Route: 041
     Dates: start: 20220719, end: 20221011
  2. OPDIVO [Suspect]
     Active Substance: NIVOLUMAB
     Indication: Renal cell carcinoma
     Dosage: ONE TIME DOSE EVERY THREE WEEKS
     Route: 041
     Dates: start: 20220719, end: 20221011

REACTIONS (1)
  - Anaemia of chronic disease [Not Recovered/Not Resolved]

NARRATIVE: CASE EVENT DATE: 20220830
